FAERS Safety Report 6759818-2 (Version None)
Quarter: 2010Q2

REPORT INFORMATION
  Report Type: 
  Country: None (occurrence: None)
  Receive Date: 20100608
  Receipt Date: 20100601
  Transmission Date: 20101027
  Serious: Yes (Other)
  Sender: FDA-Public Use
  Company Number: US-JNJFOC-20100600765

PATIENT
  Age: 55 Year
  Sex: Female
  Weight: 68.04 kg

DRUGS (4)
  1. MONISTAT 7 COMBINATION PACK [Suspect]
     Route: 067
  2. MONISTAT 7 COMBINATION PACK [Suspect]
     Indication: FUNGAL INFECTION
     Route: 067
  3. MONISTAT 7 COMBINATION PACK [Suspect]
     Route: 061
  4. MONISTAT 7 COMBINATION PACK [Suspect]
     Route: 061

REACTIONS (2)
  - BLOOD URINE PRESENT [None]
  - VULVOVAGINAL PRURITUS [None]
